FAERS Safety Report 10688070 (Version 2)
Quarter: 2015Q1

REPORT INFORMATION
  Report Type: Spontaneous
  Country: JP (occurrence: JP)
  Receive Date: 20150102
  Receipt Date: 20150129
  Transmission Date: 20150720
  Serious: Yes (Hospitalization, Other)
  Sender: FDA-Public Use
  Company Number: JP-BAYER-2014-189971

PATIENT
  Age: 34 Year
  Sex: Female

DRUGS (1)
  1. BAYASPIRIN [Suspect]
     Active Substance: ASPIRIN
     Route: 048

REACTIONS (4)
  - Caesarean section [Recovered/Resolved]
  - Placental infarction [Recovered/Resolved]
  - Subchorionic haematoma [Recovered/Resolved]
  - Umbilical cord abnormality [Recovered/Resolved]
